FAERS Safety Report 6577253-7 (Version None)
Quarter: 2010Q1

REPORT INFORMATION
  Report Type: 
  Country: None (occurrence: None)
  Receive Date: 20100210
  Receipt Date: 20100128
  Transmission Date: 20100710
  Serious: Yes (Hospitalization, Other)
  Sender: FDA-Public Use
  Company Number: JP-PFIZER INC-2010017594

PATIENT
  Age: 32 Year
  Sex: Female

DRUGS (1)
  1. ZOLOFT [Suspect]
     Indication: DEPRESSION
     Dosage: UNK
     Route: 048
     Dates: start: 20091214, end: 20100110

REACTIONS (5)
  - BACK PAIN [None]
  - DIARRHOEA [None]
  - MYELODYSPLASTIC SYNDROME [None]
  - SIDEROBLASTIC ANAEMIA [None]
  - WHITE BLOOD CELL COUNT DECREASED [None]
